FAERS Safety Report 24242644 (Version 3)
Quarter: 2024Q4

REPORT INFORMATION
  Report Type: Spontaneous
  Country: NL (occurrence: NL)
  Receive Date: 20240823
  Receipt Date: 20241011
  Transmission Date: 20250115
  Serious: Yes (Other)
  Sender: INSUD PHARMA
  Company Number: NL-MLMSERVICE-20240805-PI153112-00312-1

PATIENT
  Age: 27 Year
  Sex: Male
  Weight: 120 kg

DRUGS (9)
  1. TESTOSTERONE [Interacting]
     Active Substance: TESTOSTERONE
     Indication: Steroid therapy
     Dosage: UNK
  2. TRENBOLONE [Interacting]
     Active Substance: TRENBOLONE
     Indication: Steroid therapy
     Dosage: UNK
  3. TRENBOLONE [Interacting]
     Active Substance: TRENBOLONE
  4. CABOTEGRAVIR\RILPIVIRINE [Interacting]
     Active Substance: CABOTEGRAVIR\RILPIVIRINE
     Indication: Antiretroviral therapy
     Dosage: BI-MONTHLY INJECTIONS
     Route: 030
     Dates: start: 202303
  5. CABOTEGRAVIR\RILPIVIRINE [Interacting]
     Active Substance: CABOTEGRAVIR\RILPIVIRINE
     Dosage: UNK
     Route: 030
     Dates: start: 20230327
  6. NANDROLONE [Interacting]
     Active Substance: NANDROLONE
     Indication: Steroid therapy
     Dosage: UNK
  7. NANDROLONE [Interacting]
     Active Substance: NANDROLONE
  8. DICLOFENAC [Concomitant]
     Active Substance: DICLOFENAC
     Dosage: OCCASIONAL
  9. DICLOFENAC [Concomitant]
     Active Substance: DICLOFENAC
     Dosage: OCCASIONAL

REACTIONS (4)
  - Drug level decreased [Unknown]
  - Drug resistance [Unknown]
  - Virologic failure [Recovering/Resolving]
  - Drug interaction [Unknown]
